FAERS Safety Report 11269543 (Version 1)
Quarter: 2015Q3

REPORT INFORMATION
  Report Type: Spontaneous
  Country: US (occurrence: US)
  Receive Date: 20150714
  Receipt Date: 20150714
  Transmission Date: 20151125
  Serious: Yes (Hospitalization, Other)
  Sender: FDA-Public Use
  Company Number: US-ELI_LILLY_AND_COMPANY-US201507002098

PATIENT
  Age: 59 Year
  Sex: Male

DRUGS (4)
  1. LEVEMIR [Concomitant]
     Active Substance: INSULIN DETEMIR
     Route: 065
  2. METFORMIN [Concomitant]
     Active Substance: METFORMIN HYDROCHLORIDE
     Dosage: UNK
     Route: 065
     Dates: start: 1995, end: 201506
  3. HUMALOG [Suspect]
     Active Substance: INSULIN LISPRO
     Dosage: UNK
     Route: 065
     Dates: start: 2005
  4. HUMALOG [Suspect]
     Active Substance: INSULIN LISPRO
     Indication: DIABETES MELLITUS
     Dosage: 16 U, UNKNOWN
     Route: 065
     Dates: start: 2005

REACTIONS (13)
  - Blood pressure diastolic increased [Unknown]
  - Pyrexia [Unknown]
  - Blood glucose increased [Recovered/Resolved]
  - Urinary tract infection [Unknown]
  - Confusional state [Unknown]
  - Blood glucose increased [Recovered/Resolved]
  - Heart rate increased [Unknown]
  - Depressed level of consciousness [Unknown]
  - Feeling abnormal [Unknown]
  - Renal impairment [Not Recovered/Not Resolved]
  - Memory impairment [Unknown]
  - Dehydration [Unknown]
  - Drug ineffective [Unknown]

NARRATIVE: CASE EVENT DATE: 20150628
